FAERS Safety Report 9944267 (Version 1)
Quarter: 2014Q1

REPORT INFORMATION
  Report Type: Report from Study
  Country: US (occurrence: US)
  Receive Date: 20140303
  Receipt Date: 20140303
  Transmission Date: 20141002
  Serious: No
  Sender: FDA-Public Use
  Company Number: US-ABBVIE-13P-163-1052134-00

PATIENT
  Age: 46 Year
  Sex: Female

DRUGS (10)
  1. HUMIRA [Suspect]
     Indication: CROHN^S DISEASE
     Dates: start: 201210
  2. FENTANYL PATCH [Concomitant]
     Indication: BREAKTHROUGH PAIN
  3. PHENERGAN [Concomitant]
     Indication: NAUSEA
  4. LEXAPRO [Concomitant]
     Indication: ANXIETY
  5. VITAMIN D [Concomitant]
     Indication: VITAMIN SUPPLEMENTATION
  6. OXYCODONE [Concomitant]
     Indication: PRODUCT USED FOR UNKNOWN INDICATION
     Dates: start: 1994
  7. B12 [Concomitant]
     Indication: PRODUCT USED FOR UNKNOWN INDICATION
  8. CLINDAMYACIN [Concomitant]
     Indication: ABSCESS
     Dosage: APPLY TO BOTTOM AREA
  9. CLINDAMYACIN [Concomitant]
     Indication: FISTULA
  10. NYSTATIN CREAM [Concomitant]
     Indication: PRODUCT USED FOR UNKNOWN INDICATION

REACTIONS (1)
  - Injection site pain [Unknown]
